FAERS Safety Report 9805912 (Version 2)
Quarter: 2014Q2

REPORT INFORMATION
  Report Type: Spontaneous
  Country: US (occurrence: US)
  Receive Date: 20140109
  Receipt Date: 20140527
  Transmission Date: 20141212
  Serious: Yes (Other)
  Sender: FDA-Public Use
  Company Number: US-B.I. PHARMACEUTICALS,INC./RIDGEFIELD-2014-BI-00450BP

PATIENT
  Age: 67 Year
  Sex: Male
  Weight: 113.4 kg

DRUGS (24)
  1. PRADAXA [Suspect]
     Indication: ATRIAL FIBRILLATION
     Dosage: 300 MG
     Route: 048
     Dates: start: 20111114, end: 201202
  2. ACTOS [Concomitant]
     Dosage: 30 MG
     Route: 048
  3. AMITRIPTYLINE HCL [Concomitant]
     Dosage: 25 MG
     Route: 048
  4. AMLODIPINE BESYLATE [Concomitant]
     Dosage: 10 MG
     Route: 048
  5. ASPIRIN [Concomitant]
     Dosage: 81 MG
     Route: 048
  6. ATENOLOL [Concomitant]
     Dosage: 100 MG
     Route: 048
  7. CYMBALTA [Concomitant]
     Dosage: 60 MG
     Route: 048
  8. FUROSEMIDE [Concomitant]
     Dosage: 40 MG
     Route: 048
  9. HYDROCHLOROTHIAZIDE [Concomitant]
     Dosage: 25 MG
     Route: 048
  10. ISOSORBIDE DINITRATE [Concomitant]
     Dosage: 30 MG
     Route: 048
  11. JANUMET [Concomitant]
     Dosage: DOSE PER APPLICATION: 50-500 MG
     Route: 048
  12. LISINOPRIL [Concomitant]
     Dosage: 20 MG
     Route: 048
  13. MULTI-VITAMIN [Concomitant]
     Dosage: 1 ANZ
     Route: 048
  14. OMEPRAZOLE [Concomitant]
     Dosage: 20 MG
     Route: 048
  15. NIASPAN [Concomitant]
     Dosage: 500 MG
     Route: 048
  16. GLIMEPIRIDE [Concomitant]
     Dosage: 8 MG
     Route: 048
  17. FERREX [Concomitant]
     Dosage: 150 MG
     Route: 048
  18. PLAVIX [Concomitant]
     Dosage: 75 MG
     Route: 048
  19. HYDROCODONE-ACETAMINOPHEN [Concomitant]
     Dosage: DOSE PER APPLICATION:5-500 MG
     Route: 048
  20. STOOL SOFTNER [Concomitant]
     Dosage: 1 ANZ
     Route: 065
  21. LEVEMIR [Concomitant]
     Dosage: DOSE PER APPLICATION: 100 U/ML
     Route: 058
  22. NITROQUICK [Concomitant]
     Route: 060
  23. LIDODERM [Concomitant]
     Dosage: FORMULATION: EXTERNAL PATCH, DOSE PER APPLICATION: 5 %
     Route: 065
  24. LYRICA [Concomitant]
     Dosage: 300 MG
     Route: 048

REACTIONS (3)
  - Anaemia [Unknown]
  - Gastrointestinal haemorrhage [Unknown]
  - Epistaxis [Unknown]
